FAERS Safety Report 8045594-2 (Version None)
Quarter: 2012Q1

REPORT INFORMATION
  Report Type: 
  Country: None (occurrence: None)
  Receive Date: 20120113
  Receipt Date: 20120109
  Transmission Date: 20120608
  Serious: Yes (Other)
  Sender: FDA-Public Use
  Company Number: CA-MERCK-1201USA00972

PATIENT
  Age: 62 Year
  Sex: Female

DRUGS (4)
  1. HYZAAR [Concomitant]
     Route: 048
  2. ZETIA [Suspect]
     Route: 048
  3. LIPITOR [Suspect]
     Route: 048
  4. METFORMIN [Concomitant]
     Route: 065

REACTIONS (5)
  - DRUG INEFFECTIVE [None]
  - ABASIA [None]
  - OEDEMA PERIPHERAL [None]
  - ARTHRALGIA [None]
  - MYALGIA [None]
